FAERS Safety Report 6911980-4 (Version None)
Quarter: 2010Q3

REPORT INFORMATION
  Report Type: 
  Country: None (occurrence: None)
  Receive Date: 20100806
  Receipt Date: 20080220
  Transmission Date: 20110219
  Serious: No
  Sender: FDA-Public Use
  Company Number: US-PFIZER INC-2006057722

PATIENT
  Sex: Female

DRUGS (4)
  1. DETROL LA [Suspect]
     Indication: MICTURITION URGENCY
     Route: 048
     Dates: start: 20051101
  2. LISINOPRIL [Interacting]
     Indication: BLOOD PRESSURE
     Route: 065
  3. LOVASTATIN [Interacting]
     Indication: BLOOD CHOLESTEROL
     Route: 065
  4. VITAMIN TAB [Concomitant]
     Route: 065

REACTIONS (2)
  - DRUG INTERACTION [None]
  - THERAPEUTIC RESPONSE DECREASED [None]
